FAERS Safety Report 14032904 (Version 1)
Quarter: 2017Q4

REPORT INFORMATION
  Report Type: Spontaneous
  Country: US (occurrence: US)
  Receive Date: 20171003
  Receipt Date: 20171003
  Transmission Date: 20180321
  Serious: No
  Sender: FDA-Public Use
  Company Number: US-DRREDDYS-USA/USA/17/0087566

PATIENT
  Sex: Female
  Weight: 49.9 kg

DRUGS (1)
  1. AUGMENTIN [Suspect]
     Active Substance: AMOXICILLIN\CLAVULANATE POTASSIUM
     Indication: EAR INFECTION
     Route: 065

REACTIONS (2)
  - Urticaria [Recovered/Resolved]
  - Drug hypersensitivity [Unknown]
